FAERS Safety Report 10979863 (Version 1)
Quarter: 2015Q2

REPORT INFORMATION
  Report Type: Spontaneous
  Country: US (occurrence: US)
  Receive Date: 20150402
  Receipt Date: 20150402
  Transmission Date: 20150821
  Serious: No
  Sender: FDA-Public Use
  Company Number: US-SA-2014SA097891

PATIENT
  Age: 78 Year
  Sex: Female
  Weight: 133 kg

DRUGS (1)
  1. ALLEGRA [Suspect]
     Active Substance: FEXOFENADINE HYDROCHLORIDE
     Indication: HYPERSENSITIVITY
     Route: 048

REACTIONS (3)
  - Retching [Unknown]
  - Product solubility abnormal [Unknown]
  - Product taste abnormal [Unknown]
